FAERS Safety Report 5730738-5 (Version None)
Quarter: 2008Q2

REPORT INFORMATION
  Report Type: 
  Country: None (occurrence: None)
  Receive Date: 20080507
  Receipt Date: 20080425
  Transmission Date: 20081010
  Serious: Yes (Other)
  Sender: FDA-Public Use
  Company Number: US-PFIZER INC-2008007897

PATIENT
  Sex: Female
  Weight: 64 kg

DRUGS (6)
  1. DILANTIN [Suspect]
     Indication: CONVULSION
     Route: 048
  2. DILANTIN [Suspect]
     Indication: GRAND MAL CONVULSION
  3. FOLIC ACID [Concomitant]
     Route: 048
  4. VITAMIN CAP [Concomitant]
     Route: 048
  5. CALCIUM [Concomitant]
     Route: 048
  6. VITAMIN D [Concomitant]
     Route: 048

REACTIONS (23)
  - ANTICONVULSANT DRUG LEVEL INCREASED [None]
  - BALANCE DISORDER [None]
  - CONFUSIONAL STATE [None]
  - CONVULSION [None]
  - DISTURBANCE IN ATTENTION [None]
  - DIZZINESS [None]
  - DRUG TOXICITY [None]
  - EYE DISORDER [None]
  - FATIGUE [None]
  - FEELING ABNORMAL [None]
  - FEELING JITTERY [None]
  - HEADACHE [None]
  - ILL-DEFINED DISORDER [None]
  - INSOMNIA [None]
  - NERVOUSNESS [None]
  - PALLANAESTHESIA [None]
  - PARAESTHESIA [None]
  - PERFORMANCE STATUS DECREASED [None]
  - QUALITY OF LIFE DECREASED [None]
  - SOMNOLENCE [None]
  - STRABISMUS [None]
  - TINNITUS [None]
  - VISION BLURRED [None]
